FAERS Safety Report 11872544 (Version 1)
Quarter: 2015Q4

REPORT INFORMATION
  Report Type: Spontaneous
  Country: US (occurrence: None)
  Receive Date: 20151224
  Receipt Date: 20151224
  Transmission Date: 20160305
  Serious: Yes (Other)
  Sender: FDA-Public Use
  Company Number: None

PATIENT
  Age: 65 Year
  Sex: Female
  Weight: 65.77 kg

DRUGS (5)
  1. XGEVA [Suspect]
     Active Substance: DENOSUMAB
     Indication: BREAST CANCER METASTATIC
     Dosage: EVERY SIX WEEKS
     Dates: start: 20140301, end: 20150501
  2. HERCEPTIN [Concomitant]
     Active Substance: TRASTUZUMAB
  3. PERJETA [Concomitant]
     Active Substance: PERTUZUMAB
  4. MORPHINE [Concomitant]
     Active Substance: MORPHINE
  5. SERTRALANE [Concomitant]

REACTIONS (2)
  - Implant site reaction [None]
  - Jaw disorder [None]

NARRATIVE: CASE EVENT DATE: 20150501
